FAERS Safety Report 19021932 (Version 2)
Quarter: 2021Q2

REPORT INFORMATION
  Report Type: Spontaneous
  Country: US (occurrence: US)
  Receive Date: 20210317
  Receipt Date: 20210415
  Transmission Date: 20210717
  Serious: No
  Sender: FDA-Public Use
  Company Number: US-SUNOVION-2021SUN000805

PATIENT
  Sex: Male

DRUGS (3)
  1. RYTARY [Suspect]
     Active Substance: CARBIDOPA\LEVODOPA
     Dosage: UNK
  2. KYNMOBI [Suspect]
     Active Substance: APOMORPHINE HYDROCHLORIDE
     Indication: PARKINSON^S DISEASE
     Dosage: UNK, 3?4 TIMES A WEEK
     Route: 060
     Dates: start: 20201201
  3. NEUPRO [Concomitant]
     Active Substance: ROTIGOTINE
     Dosage: UNK

REACTIONS (8)
  - Nausea [Unknown]
  - Abdominal pain upper [Unknown]
  - Dizziness [Unknown]
  - Bradykinesia [Unknown]
  - Gait disturbance [Unknown]
  - Speech disorder [Unknown]
  - Dyskinesia [Unknown]
  - Dysarthria [Unknown]
